FAERS Safety Report 7947985-4 (Version None)
Quarter: 2011Q4

REPORT INFORMATION
  Report Type: 
  Country: None (occurrence: None)
  Receive Date: 20111130
  Receipt Date: 20111128
  Transmission Date: 20120403
  Serious: Yes (Death)
  Sender: FDA-Public Use
  Company Number: AT-JNJFOC-20110900443

PATIENT

DRUGS (3)
  1. REOPRO [Suspect]
     Indication: MYOCARDIAL INFARCTION
     Route: 065
  2. HEPARIN [Suspect]
     Indication: MYOCARDIAL INFARCTION
     Route: 042
  3. ASPIRIN [Suspect]
     Indication: MYOCARDIAL INFARCTION
     Route: 042

REACTIONS (2)
  - DRUG INEFFECTIVE [None]
  - PULMONARY HAEMORRHAGE [None]
